FAERS Safety Report 7078976-6 (Version None)
Quarter: 2010Q4

REPORT INFORMATION
  Report Type: 
  Country: None (occurrence: None)
  Receive Date: 20101102
  Receipt Date: 20101027
  Transmission Date: 20110411
  Serious: Yes (Other)
  Sender: FDA-Public Use
  Company Number: DE-NAPPMUNDI-DEU-2010-0006656

PATIENT
  Sex: Female

DRUGS (6)
  1. NORSPAN 5 UG/H [Suspect]
     Indication: PRODUCT USED FOR UNKNOWN INDICATION
     Dosage: 5 MCG, Q1H
     Route: 062
     Dates: start: 20100601
  2. FOSAMAX [Concomitant]
  3. FUROSEMID                          /00032601/ [Concomitant]
  4. NEXIUM                             /01479303/ [Concomitant]
  5. MCP                                /00041901/ [Concomitant]
  6. ATACAND [Concomitant]

REACTIONS (3)
  - DECREASED ACTIVITY [None]
  - NASOPHARYNGITIS [None]
  - VISUAL ACUITY REDUCED [None]
